FAERS Safety Report 18934969 (Version 1)
Quarter: 2021Q1

REPORT INFORMATION
  Report Type: Report from Study
  Country: US (occurrence: US)
  Receive Date: 20210224
  Receipt Date: 20210224
  Transmission Date: 20210420
  Serious: Yes (Other)
  Sender: FDA-Public Use
  Company Number: NVSC2020US335605

PATIENT
  Age: 52 Year
  Sex: Male

DRUGS (7)
  1. BLINDED NO TREATMENT RECEIVED [Suspect]
     Active Substance: INVESTIGATIONAL PRODUCT
     Indication: COVID-19
     Dosage: CODE NOT BROKEN
     Route: 048
     Dates: start: 20201113, end: 20201121
  2. METHYLPREDNISOLONE. [Suspect]
     Active Substance: METHYLPREDNISOLONE
     Indication: PRODUCT USED FOR UNKNOWN INDICATION
     Dosage: UNK
     Route: 065
  3. PLACEBO [Suspect]
     Active Substance: UNSPECIFIED INGREDIENT
     Indication: COVID-19
     Dosage: CODE NOT BROKEN
     Route: 048
     Dates: start: 20201113, end: 20201121
  4. PLACEBO [Suspect]
     Active Substance: UNSPECIFIED INGREDIENT
     Indication: ACUTE RESPIRATORY DISTRESS SYNDROME
     Dosage: CODE NOT BROKEN
     Route: 048
     Dates: start: 20201121, end: 20201127
  5. BLINDED NO TREATMENT RECEIVED [Suspect]
     Active Substance: INVESTIGATIONAL PRODUCT
     Indication: ACUTE RESPIRATORY DISTRESS SYNDROME
     Dosage: CODE NOT BROKEN
     Route: 048
     Dates: start: 20201121, end: 20201127
  6. BLINDED INC424 [Suspect]
     Active Substance: RUXOLITINIB
     Indication: COVID-19
     Dosage: CODE NOT BROKEN
     Route: 048
     Dates: start: 20201113, end: 20201121
  7. BLINDED INC424 [Suspect]
     Active Substance: RUXOLITINIB
     Indication: ACUTE RESPIRATORY DISTRESS SYNDROME
     Dosage: CODE NOT BROKEN
     Route: 048
     Dates: start: 20201121, end: 20201127

REACTIONS (1)
  - Duodenal ulcer perforation [Recovering/Resolving]

NARRATIVE: CASE EVENT DATE: 20201205
